FAERS Safety Report 14102197 (Version 1)
Quarter: 2017Q4

REPORT INFORMATION
  Report Type: Spontaneous
  Country: US (occurrence: US)
  Receive Date: 20171018
  Receipt Date: 20171018
  Transmission Date: 20180321
  Serious: No
  Sender: FDA-Public Use
  Company Number: US-009507513-1709USA014030

PATIENT
  Age: 72 Year
  Sex: Male

DRUGS (5)
  1. TESTOSTERONE. [Concomitant]
     Active Substance: TESTOSTERONE
  2. KLONOPIN [Concomitant]
     Active Substance: CLONAZEPAM
     Dosage: UNK
  3. BELSOMRA [Suspect]
     Active Substance: SUVOREXANT
     Dosage: 15 MG ONCE A DAY
     Route: 048
     Dates: start: 2015
  4. BELSOMRA [Suspect]
     Active Substance: SUVOREXANT
     Indication: INSOMNIA
     Dosage: TWO 10 MG TABLETS A DAY.
     Route: 048
     Dates: start: 2015
  5. SYNTHROID [Concomitant]
     Active Substance: LEVOTHYROXINE SODIUM
     Dosage: UNK

REACTIONS (10)
  - Fatigue [Not Recovered/Not Resolved]
  - Somnolence [Not Recovered/Not Resolved]
  - Intentional product use issue [Unknown]
  - Amnesia [Not Recovered/Not Resolved]
  - Dissociation [Not Recovered/Not Resolved]
  - Drug effect decreased [Not Recovered/Not Resolved]
  - Anxiety [Not Recovered/Not Resolved]
  - Wrong technique in product usage process [Unknown]
  - Hangover [Not Recovered/Not Resolved]
  - Insomnia [Not Recovered/Not Resolved]
